FAERS Safety Report 4806873-2 (Version None)
Quarter: 2005Q4

REPORT INFORMATION
  Report Type: 
  Country: None (occurrence: None)
  Receive Date: 20051020
  Receipt Date: 20051020
  Transmission Date: 20060501
  Serious: Yes (Hospitalization)
  Sender: FDA-Public Use
  Company Number: None

PATIENT
  Sex: Male
  Weight: 64.53 kg

DRUGS (5)
  1. GEMCITABINE   675MG/M2/DOSE   LILLY [Suspect]
     Indication: BONE SARCOMA
     Dosage: 675MG/M2/DOSE, 9/2 + 9/9/05,  IV
     Route: 042
     Dates: start: 20050902
  2. GEMCITABINE   675MG/M2/DOSE   LILLY [Suspect]
     Indication: BONE SARCOMA
     Dosage: 675MG/M2/DOSE, 9/2 + 9/9/05,  IV
     Route: 042
     Dates: start: 20050909
  3. DOCETAXEL    75MG/M2/DOSE;   AVENTIS [Suspect]
     Indication: BONE SARCOMA
     Dosage: 75MG/M2/DOSE,   9/9/05,   IV
     Route: 042
     Dates: start: 20050909
  4. LOVENOX [Concomitant]
  5. MS CONTIN [Concomitant]

REACTIONS (4)
  - DEHYDRATION [None]
  - ORTHOSTATIC HYPOTENSION [None]
  - PLEURAL EFFUSION [None]
  - PNEUMONITIS [None]
